FAERS Safety Report 16765856 (Version 1)
Quarter: 2019Q3

REPORT INFORMATION
  Report Type: Spontaneous
  Country: US (occurrence: US)
  Receive Date: 20190903
  Receipt Date: 20190903
  Transmission Date: 20191005
  Serious: Yes (Hospitalization)
  Sender: FDA-Public Use
  Company Number: US-TEVA-2019-US-1102388

PATIENT
  Age: 8 Decade
  Sex: Female

DRUGS (2)
  1. CAPECITABINE. [Suspect]
     Active Substance: CAPECITABINE
     Indication: ADJUVANT THERAPY
  2. CAPECITABINE. [Suspect]
     Active Substance: CAPECITABINE
     Indication: BREAST CANCER STAGE III
     Route: 048

REACTIONS (6)
  - Pneumoperitoneum [Recovering/Resolving]
  - Intestinal perforation [Unknown]
  - Diarrhoea [Recovered/Resolved]
  - Pneumatosis intestinalis [Recovering/Resolving]
  - Acute kidney injury [Recovering/Resolving]
  - Gastrointestinal inflammation [Recovering/Resolving]
